FAERS Safety Report 5565928-8 (Version None)
Quarter: 2007Q4

REPORT INFORMATION
  Report Type: 
  Country: None (occurrence: None)
  Receive Date: 20071219
  Receipt Date: 20071210
  Transmission Date: 20080405
  Serious: Yes (Hospitalization)
  Sender: FDA-Public Use
  Company Number: PHRM2007FR02799

PATIENT
  Age: 73 Year
  Sex: Male

DRUGS (1)
  1. EXJADE [Suspect]
     Indication: HAEMOCHROMATOSIS
     Route: 048
     Dates: start: 20070101, end: 20070216

REACTIONS (5)
  - CONFUSIONAL STATE [None]
  - DIARRHOEA [None]
  - HYPOCALCAEMIA [None]
  - MALAISE [None]
  - SEPSIS [None]
